FAERS Safety Report 12120260 (Version 2)
Quarter: 2016Q2

REPORT INFORMATION
  Report Type: Spontaneous
  Country: US (occurrence: US)
  Receive Date: 20160226
  Receipt Date: 20160415
  Transmission Date: 20160815
  Serious: Yes (Death, Hospitalization)
  Sender: FDA-Public Use
  Company Number: US-ENDO PHARMACEUTICALS INC.-2016-001431

PATIENT
  Age: 55 Year
  Sex: Male
  Weight: 113.5 kg

DRUGS (8)
  1. ANASTOZOLE [Concomitant]
     Active Substance: ANASTROZOLE
     Indication: ASTHMA
     Route: 065
     Dates: start: 2013, end: 2013
  2. TUDORZA PRESSAIR [Concomitant]
     Active Substance: ACLIDINIUM BROMIDE
     Indication: ASTHMA
     Route: 065
     Dates: start: 2013, end: 2013
  3. AMOXICILLIN CAPSULES [Concomitant]
     Active Substance: AMOXICILLIN
     Indication: INFECTION
     Route: 065
     Dates: start: 2011, end: 2013
  4. TESTOPEL [Suspect]
     Active Substance: TESTOSTERONE
     Indication: ANDROGEN REPLACEMENT THERAPY
     Route: 058
     Dates: start: 201301, end: 201312
  5. ANDROGEL [Suspect]
     Active Substance: TESTOSTERONE
     Indication: ANDROGEN REPLACEMENT THERAPY
     Route: 065
     Dates: start: 201301, end: 201307
  6. TRAMADOL. [Concomitant]
     Active Substance: TRAMADOL
     Indication: PAIN
     Route: 065
     Dates: start: 2011, end: 2013
  7. TESTIM [Suspect]
     Active Substance: TESTOSTERONE
     Indication: ANDROGEN REPLACEMENT THERAPY
     Route: 062
     Dates: start: 201301, end: 201312
  8. COMBIVENT [Concomitant]
     Active Substance: ALBUTEROL SULFATE\IPRATROPIUM BROMIDE
     Indication: ASTHMA
     Route: 065
     Dates: start: 2013, end: 2013

REACTIONS (2)
  - Pulmonary embolism [Fatal]
  - Pain [Unknown]

NARRATIVE: CASE EVENT DATE: 20131202
